FAERS Safety Report 6261593-5 (Version None)
Quarter: 2009Q3

REPORT INFORMATION
  Report Type: 
  Country: None (occurrence: None)
  Receive Date: 20090709
  Receipt Date: 20090629
  Transmission Date: 20100115
  Serious: Yes (Other)
  Sender: FDA-Public Use
  Company Number: US-PFIZER INC-2009234564

PATIENT
  Sex: Female
  Weight: 99 kg

DRUGS (2)
  1. MEDROXYPROGESTERONE AND MEDROXYPROGESTERONE ACETATE [Suspect]
     Indication: CONTRACEPTION
     Dosage: 150 MG, EVERY 3 MONTHS
     Route: 030
     Dates: start: 20090629, end: 20090629
  2. CLINDAMYCIN HCL [Suspect]

REACTIONS (9)
  - CHEST DISCOMFORT [None]
  - DIARRHOEA [None]
  - FLUSHING [None]
  - HEART RATE INCREASED [None]
  - HYPERSENSITIVITY [None]
  - NAUSEA [None]
  - TREMOR [None]
  - URTICARIA [None]
  - VOMITING [None]
